FAERS Safety Report 8221058 (Version 3)
Quarter: 2013Q4

REPORT INFORMATION
  Report Type: Spontaneous
  Country: US (occurrence: US)
  Receive Date: 20111102
  Receipt Date: 20131017
  Transmission Date: 20140711
  Serious: Yes (Other)
  Sender: FDA-Public Use
  Company Number: US-US-EMD SERONO, INC.-7091314

PATIENT
  Sex: Female
  Weight: 77 kg

DRUGS (4)
  1. REBIF [Suspect]
     Indication: MULTIPLE SCLEROSIS
     Dates: start: 2005, end: 2011
  2. REBIF [Suspect]
     Dosage: INCREASED FROM 22 MCG TO 44 MCG ON UNKNOWN DATE
     Dates: start: 20110909, end: 20121215
  3. REBIF [Suspect]
     Route: 058
     Dates: start: 20130904
  4. TYLENOL EXTRA-STRENGTH [Concomitant]
     Indication: PREMEDICATION

REACTIONS (2)
  - Diabetes mellitus [Not Recovered/Not Resolved]
  - Injection site pain [Not Recovered/Not Resolved]
